FAERS Safety Report 7061229-X (Version None)
Quarter: 2010Q4

REPORT INFORMATION
  Report Type: 
  Country: None (occurrence: None)
  Receive Date: 20101026
  Receipt Date: 20101019
  Transmission Date: 20110411
  Serious: Yes (Other)
  Sender: FDA-Public Use
  Company Number: US-PFIZER INC-2010132863

PATIENT

DRUGS (1)
  1. VFEND [Suspect]
     Dosage: UNK
     Route: 042

REACTIONS (2)
  - CHROMATOPSIA [None]
  - RENAL FAILURE [None]
